FAERS Safety Report 9406301 (Version 1)
Quarter: 2013Q3

REPORT INFORMATION
  Report Type: Spontaneous
  Country: ES (occurrence: ES)
  Receive Date: 20130717
  Receipt Date: 20130717
  Transmission Date: 20140515
  Serious: Yes (Other)
  Sender: FDA-Public Use
  Company Number: ES-009507513-1307ESP003137

PATIENT
  Age: 71 Year
  Sex: Female

DRUGS (5)
  1. ROCURONIUM BROMIDE [Suspect]
     Indication: INDUCTION OF ANAESTHESIA
     Dosage: 50 MG, UNK
  2. AMOXICILLIN (+) CLAVULANATE POTASSIUM [Concomitant]
     Dosage: 2 G, UNK
  3. FENTANYL [Concomitant]
     Dosage: 150 MG, UNK
  4. PROPOFOL [Concomitant]
     Dosage: 200 MG, UNK
  5. ONDANSETRON HYDROCHLORIDE [Concomitant]

REACTIONS (2)
  - Cardio-respiratory arrest [Unknown]
  - Anaphylactic reaction [Unknown]
